FAERS Safety Report 20877836 (Version 1)
Quarter: 2022Q2

REPORT INFORMATION
  Report Type: Spontaneous
  Country: US (occurrence: US)
  Receive Date: 20220526
  Receipt Date: 20220526
  Transmission Date: 20220720
  Serious: No
  Sender: FDA-Public Use
  Company Number: US-PFIZER INC-202200738011

PATIENT
  Age: 75 Year
  Sex: Male
  Weight: 69.4 kg

DRUGS (22)
  1. PAXLOVID [Suspect]
     Active Substance: NIRMATRELVIR\RITONAVIR
     Indication: COVID-19 treatment
     Dosage: UNK, 2X/DAY (2-150MG AND 1 TABLET 100MG TWICE DAILY)
     Dates: start: 20220518
  2. ZYTIGA [Concomitant]
     Active Substance: ABIRATERONE ACETATE
     Indication: Prostate cancer metastatic
     Dosage: UNK
     Dates: start: 202108
  3. ELIQUIS [Concomitant]
     Active Substance: APIXABAN
     Dosage: 5 MG, 2X/DAY
     Dates: start: 202108
  4. ELIQUIS [Concomitant]
     Active Substance: APIXABAN
     Dosage: 2.5 MG, 1X/DAY
  5. VANCOMYCIN [Concomitant]
     Active Substance: VANCOMYCIN
     Indication: Clostridium difficile colitis
     Dosage: UNK, 4X/DAY (2 WEEK COURSE 4 TIMES A DAY)
  6. GLIPIZIDE [Concomitant]
     Active Substance: GLIPIZIDE
     Dosage: 5 MG
     Dates: start: 202108
  7. ROSUVASTATIN [Concomitant]
     Active Substance: ROSUVASTATIN
     Dosage: UNK
     Dates: start: 202108
  8. VALSARTAN [Concomitant]
     Active Substance: VALSARTAN
     Dosage: UNK
     Dates: start: 202108
  9. TAMOXIFEN [Concomitant]
     Active Substance: TAMOXIFEN
     Indication: Prostate cancer metastatic
     Dosage: UNK
     Dates: start: 202108, end: 20220518
  10. CELEBREX [Concomitant]
     Active Substance: CELECOXIB
     Dosage: UNK, AS NEEDED (TAKE UP TO 1 TWICE DAILY AS NEEDED)
     Dates: start: 202108
  11. CALCIUM\ERGOCALCIFEROL [Concomitant]
     Active Substance: CALCIUM\ERGOCALCIFEROL
     Dosage: UNK (1000MG + D)
     Dates: start: 202108
  12. MINERALS\VITAMINS [Concomitant]
     Active Substance: MINERALS\VITAMINS
     Indication: Hypovitaminosis
     Dosage: UNK
     Dates: start: 202108
  13. ADVAIR HFA [Concomitant]
     Active Substance: FLUTICASONE PROPIONATE\SALMETEROL XINAFOATE
     Indication: Oxygen saturation decreased
     Dosage: UNK, DAILY (2 PUFFS ONCE DAILY)
  14. ALBUTEROL [Concomitant]
     Active Substance: ALBUTEROL
     Dosage: UNK, AS NEEDED
     Dates: start: 202108
  15. PANTOPRAZOLE [Concomitant]
     Active Substance: PANTOPRAZOLE
     Dosage: UNK
     Dates: start: 202108
  16. PREDNISONE [Concomitant]
     Active Substance: PREDNISONE
     Dosage: 5 MG
     Dates: start: 202108
  17. ELIGARD [Concomitant]
     Active Substance: LEUPROLIDE ACETATE
     Dosage: UNK, EVERY 3 MONTHS
     Dates: start: 202108
  18. ZINC [Concomitant]
     Active Substance: ZINC
     Dosage: 3 DF, DAILY (GUMMIES)
  19. TYLENOL [Concomitant]
     Active Substance: ACETAMINOPHEN
     Indication: Pyrexia
     Dosage: UNK (ALTERNATING WITH IBUPROFEN)
  20. IBUPROFEN [Concomitant]
     Active Substance: IBUPROFEN
     Indication: Pyrexia
     Dosage: UNK
  21. ALLEGRA [Concomitant]
     Active Substance: FEXOFENADINE HYDROCHLORIDE
     Indication: Eosinophil count increased
     Dosage: UNK UNK, DAILY
  22. ZYRTEC [Concomitant]
     Active Substance: CETIRIZINE HYDROCHLORIDE
     Indication: Eosinophil count abnormal
     Dosage: UNK, DAILY

REACTIONS (3)
  - Dysgeusia [Not Recovered/Not Resolved]
  - Chromaturia [Unknown]
  - Irritability [Unknown]

NARRATIVE: CASE EVENT DATE: 20220501
